FAERS Safety Report 6097082-0 (Version None)
Quarter: 2009Q1

REPORT INFORMATION
  Report Type: 
  Country: None (occurrence: None)
  Receive Date: 20090226
  Receipt Date: 20090226
  Transmission Date: 20090719
  Serious: Yes (Disabling, Other)
  Sender: FDA-Public Use
  Company Number: None

PATIENT
  Sex: Female
  Weight: 64.4108 kg

DRUGS (2)
  1. MACROBID [Suspect]
     Indication: URINARY TRACT INFECTION
     Dosage: 100 MG. 2 X DAY ORAL
     Route: 048
     Dates: start: 20081111, end: 20081113
  2. LYRICA [Concomitant]

REACTIONS (6)
  - DELUSION [None]
  - EYE PAIN [None]
  - PARANOIA [None]
  - PSYCHOTIC DISORDER [None]
  - URINE ODOUR ABNORMAL [None]
  - VISUAL ACUITY REDUCED [None]
